FAERS Safety Report 5034311-6 (Version None)
Quarter: 2006Q2

REPORT INFORMATION
  Report Type: 
  Country: None (occurrence: None)
  Receive Date: 20060626
  Receipt Date: 20060614
  Transmission Date: 20061013
  Serious: Yes (Other)
  Sender: FDA-Public Use
  Company Number: PHFR2006GB01988

PATIENT
  Age: 53 Year
  Sex: Female

DRUGS (2)
  1. ZOMETA [Suspect]
     Indication: HYPERCALCAEMIA OF MALIGNANCY
     Dates: start: 20060518
  2. PAMIDRONATE DISODIUM [Suspect]
     Indication: HYPERCALCAEMIA OF MALIGNANCY
     Route: 065
     Dates: start: 20060209

REACTIONS (2)
  - NEPHROLITHIASIS [None]
  - RENAL FAILURE ACUTE [None]
